FAERS Safety Report 4904243-X (Version None)
Quarter: 2006Q1

REPORT INFORMATION
  Report Type: 
  Country: None (occurrence: None)
  Receive Date: 20060208
  Receipt Date: 20050815
  Transmission Date: 20060701
  Serious: No
  Sender: FDA-Public Use
  Company Number: US-GLAXOSMITHKLINE-A0570275A

PATIENT
  Age: 30 Year
  Sex: Male

DRUGS (3)
  1. PAXIL [Suspect]
     Indication: DEPRESSION
     Dosage: 20MG PER DAY
     Route: 048
     Dates: start: 20040801, end: 20050401
  2. PAXIL [Suspect]
     Dosage: 25MG PER DAY
     Route: 048
     Dates: start: 20050701
  3. NO CONCURRENT MEDICATION [Concomitant]

REACTIONS (3)
  - ANOREXIA [None]
  - INSOMNIA [None]
  - NIGHTMARE [None]
